FAERS Safety Report 24569465 (Version 3)
Quarter: 2025Q4

REPORT INFORMATION
  Report Type: Report from Study
  Country: CA (occurrence: CA)
  Receive Date: 20241031
  Receipt Date: 20251029
  Transmission Date: 20260118
  Serious: Yes (Hospitalization)
  Sender: ABBVIE
  Company Number: CA-ABBVIE-5752287

PATIENT
  Age: 72 Year
  Sex: Male

DRUGS (11)
  1. VYALEV [Suspect]
     Active Substance: FOSCARBIDOPA\FOSLEVODOPA
     Indication: Parkinson^s disease
     Dosage: LAST ADMIN DATE: MAY 2024
     Route: 058
     Dates: start: 20240430
  2. VYALEV [Suspect]
     Active Substance: FOSCARBIDOPA\FOSLEVODOPA
     Route: 058
     Dates: start: 202405
  3. SYNTHROID [Concomitant]
     Active Substance: LEVOTHYROXINE SODIUM
     Indication: Product used for unknown indication
  4. CLOZARIL [Concomitant]
     Active Substance: CLOZAPINE
     Indication: Product used for unknown indication
     Dosage: 1 FULL TABLET
  5. ALFUZOSIN [Concomitant]
     Active Substance: ALFUZOSIN
     Indication: Product used for unknown indication
  6. SOTALOL [Concomitant]
     Active Substance: SOTALOL
     Indication: Product used for unknown indication
  7. FESOTERODINE [Concomitant]
     Active Substance: FESOTERODINE
     Indication: Product used for unknown indication
  8. PRAMIPEXOLE [Concomitant]
     Active Substance: PRAMIPEXOLE
     Indication: Product used for unknown indication
  9. APIXABAN [Concomitant]
     Active Substance: APIXABAN
     Indication: Anticoagulant therapy
  10. CARBIDOPA\LEVODOPA [Concomitant]
     Active Substance: CARBIDOPA\LEVODOPA
     Indication: Product used for unknown indication
  11. RIVASTIGMINE [Concomitant]
     Active Substance: RIVASTIGMINE
     Indication: Product used for unknown indication

REACTIONS (31)
  - Urinary retention [Not Recovered/Not Resolved]
  - Device leakage [Unknown]
  - Malaise [Unknown]
  - Gait inability [Unknown]
  - Therapeutic product effect incomplete [Unknown]
  - Anxiety [Recovering/Resolving]
  - Catheter site pain [Unknown]
  - Catheter site haemorrhage [Recovered/Resolved]
  - Musculoskeletal stiffness [Not Recovered/Not Resolved]
  - Fall [Unknown]
  - Injection site papule [Unknown]
  - Injection site bruising [Unknown]
  - Hallucination [Recovered/Resolved]
  - Fatigue [Unknown]
  - Sleep disorder [Unknown]
  - Infusion site mass [Recovering/Resolving]
  - Infusion site pain [Recovered/Resolved]
  - Confusional state [Unknown]
  - Unintentional medical device removal [Unknown]
  - Hallucination [Unknown]
  - Feeding disorder [Not Recovered/Not Resolved]
  - Freezing phenomenon [Unknown]
  - Dizziness [Unknown]
  - Injection site erythema [Unknown]
  - Emotional distress [Unknown]
  - Catheter site pain [Recovered/Resolved]
  - Infusion site bruising [Unknown]
  - Confusional state [Unknown]
  - Amnesia [Recovered/Resolved]
  - Catheter site pain [Recovered/Resolved]
  - Device defective [Unknown]

NARRATIVE: CASE EVENT DATE: 20240101
